FAERS Safety Report 12636029 (Version 1)
Quarter: 2016Q3

REPORT INFORMATION
  Report Type: Spontaneous
  Country: US (occurrence: US)
  Receive Date: 20160809
  Receipt Date: 20160809
  Transmission Date: 20161109
  Serious: No
  Sender: FDA-Public Use
  Company Number: US-BEH-2016072015

PATIENT
  Age: 79 Year
  Sex: Female
  Weight: 70.3 kg

DRUGS (24)
  1. COLACE [Concomitant]
     Active Substance: DOCUSATE SODIUM
  2. ZOFRAN [Concomitant]
     Active Substance: ONDANSETRON HYDROCHLORIDE
  3. IBUPROFEN. [Concomitant]
     Active Substance: IBUPROFEN
  4. XOPENEX [Concomitant]
     Active Substance: LEVALBUTEROL HYDROCHLORIDE
  5. ZEMAIRA [Suspect]
     Active Substance: .ALPHA.1-PROTEINASE INHIBITOR HUMAN
     Indication: ALPHA-1 ANTI-TRYPSIN DEFICIENCY
     Dosage: 60 MG/KG, QW
     Route: 042
  6. DIPHENHYDRAMINE. [Concomitant]
     Active Substance: DIPHENHYDRAMINE
  7. SPIRIVA [Concomitant]
     Active Substance: TIOTROPIUM BROMIDE MONOHYDRATE
  8. MAXAIR                             /00587603/ [Concomitant]
  9. OXYGEN. [Concomitant]
     Active Substance: OXYGEN
  10. CYTOMEL [Concomitant]
     Active Substance: LIOTHYRONINE SODIUM
  11. AMBIEN [Concomitant]
     Active Substance: ZOLPIDEM TARTRATE
  12. FORTEO [Concomitant]
     Active Substance: TERIPARATIDE
  13. CLARITIN [Concomitant]
     Active Substance: LORATADINE
  14. LMX                                /00033401/ [Concomitant]
  15. LEVALBUTEROL. [Concomitant]
     Active Substance: LEVALBUTEROL
  16. NORMAL SALINE [Concomitant]
     Active Substance: SODIUM CHLORIDE
  17. SYNTHROID [Concomitant]
     Active Substance: LEVOTHYROXINE SODIUM
  18. LEXAPRO [Concomitant]
     Active Substance: ESCITALOPRAM OXALATE
  19. SODIUM CHLORIDE. [Concomitant]
     Active Substance: SODIUM CHLORIDE
  20. EPIPEN [Concomitant]
     Active Substance: EPINEPHRINE
  21. CENTRUM SILVER                     /02363801/ [Concomitant]
     Active Substance: MINERALS\VITAMINS
  22. SYMBICORT [Concomitant]
     Active Substance: BUDESONIDE\FORMOTEROL FUMARATE DIHYDRATE
  23. FLUOROMETHOLONE. [Concomitant]
     Active Substance: FLUOROMETHOLONE
  24. TYLENOL [Concomitant]
     Active Substance: ACETAMINOPHEN

REACTIONS (3)
  - Asthenia [Unknown]
  - Vomiting [Unknown]
  - Urinary tract infection [Unknown]

NARRATIVE: CASE EVENT DATE: 20160307
